FAERS Safety Report 9114745 (Version 1)
Quarter: 2013Q1

REPORT INFORMATION
  Report Type: Spontaneous
  Country: US (occurrence: None)
  Receive Date: 20130220
  Receipt Date: 20130220
  Transmission Date: 20140127
  Serious: Yes (Life-Threatening, Hospitalization)
  Sender: FDA-Public Use
  Company Number: None

PATIENT
  Age: 66 Year
  Sex: Male

DRUGS (1)
  1. INSULIN [Suspect]
     Indication: DIABETES MELLITUS
     Dosage: 7 UNITS  ONCE   SQ?02/12/2013  THRU  02/12/2013
     Route: 058
     Dates: start: 20130212, end: 20130212

REACTIONS (6)
  - Mental status changes [None]
  - Blood pressure increased [None]
  - Hypoglycaemia [None]
  - Apnoea [None]
  - Cardio-respiratory arrest [None]
  - Unresponsive to stimuli [None]
